FAERS Safety Report 13122878 (Version 1)
Quarter: 2017Q1

REPORT INFORMATION
  Report Type: Spontaneous
  Country: US (occurrence: US)
  Receive Date: 20170117
  Receipt Date: 20170117
  Transmission Date: 20170428
  Serious: No
  Sender: FDA-Public Use
  Company Number: US-BRISTOL-MYERS SQUIBB COMPANY-BMS-2017-001951

PATIENT
  Sex: Female

DRUGS (1)
  1. SPRYCEL [Suspect]
     Active Substance: DASATINIB
     Indication: MYELOPROLIFERATIVE NEOPLASM
     Dosage: 100 MG, QD
     Route: 048
     Dates: start: 20161215

REACTIONS (3)
  - Weight decreased [Unknown]
  - Decreased appetite [Unknown]
  - Nausea [Unknown]
